FAERS Safety Report 7214178-8 (Version None)
Quarter: 2011Q1

REPORT INFORMATION
  Report Type: 
  Country: None (occurrence: None)
  Receive Date: 20110107
  Receipt Date: 20101228
  Transmission Date: 20110831
  Serious: Yes (Hospitalization)
  Sender: FDA-Public Use
  Company Number: JP-ASTELLAS-2010JP007669

PATIENT
  Age: 58 Year
  Sex: Female
  Weight: 52 kg

DRUGS (4)
  1. MICARDIS [Concomitant]
     Dosage: 40 MG, UNKNOWN/D
     Route: 048
  2. TACROLIMUS [Suspect]
     Indication: LUPUS NEPHRITIS
     Dosage: 2 MG, UNKNOWN/D
     Route: 048
     Dates: start: 20090520, end: 20091116
  3. ADALAT [Concomitant]
     Dosage: 20 MG, UNKNOWN/D
     Route: 048
  4. PREDNISOLONE [Concomitant]
     Indication: LUPUS NEPHRITIS
     Dosage: 9 MG, UNKNOWN/D
     Route: 048

REACTIONS (1)
  - ANEURYSM RUPTURED [None]
